FAERS Safety Report 10810437 (Version 1)
Quarter: 2015Q1

REPORT INFORMATION
  Report Type: Spontaneous
  Country: US (occurrence: None)
  Receive Date: 20150212
  Receipt Date: 20150212
  Transmission Date: 20150721
  Serious: Yes (Hospitalization)
  Sender: FDA-Public Use
  Company Number: US-H14001-15-00201

PATIENT
  Age: 69 Year
  Sex: Female

DRUGS (13)
  1. CITALOPRAM (CITALOPRAM) (UNKNOWN) (CITALOPRAM) [Concomitant]
  2. FLUTICASONE (FLUTICASONE) (UNKNOWN) (FLUTICASONE) [Concomitant]
  3. OXYCODONE-ACETAMINOPHEN (OXYCOCET) (UNKNOWN) (PARACETAMOL, OXYCODONE HYDROCHLORIDE) [Concomitant]
  4. LIDODERM (LIDOCAINE) (POULTICE OR PATCH) (LIDOCAINE) [Concomitant]
  5. GABAPENTIN (GABAPENTIN) (UNKNOWN) (GABAPENTIN) [Concomitant]
     Active Substance: GABAPENTIN
  6. PREDNISOLONE (PREDNISOLONE) (UNKNOWN) (PREDNISOLONE) [Concomitant]
  7. LORATADINE (LORATADINE) (UNKNOWN) (LORATADINE) [Concomitant]
  8. AMIODARONE (AMIODARONE) (UNKNOWN) [Suspect]
     Active Substance: AMIODARONE
     Indication: ATRIAL FIBRILLATION
  9. ASPRIN [Concomitant]
     Active Substance: ASPIRIN
  10. MIDODRINE (MIDODRINE) (UNKNOWN) (MIDODRINE) [Concomitant]
  11. ALPRAZOLAM (ALPRAZOLAM) (UNKNOWN) (ALPRAZOLAM) [Concomitant]
     Active Substance: ALPRAZOLAM
  12. WARFARIN (WARFARIN) (UNKNOWN) (WARFARIN) [Concomitant]
  13. METOPROLOL SUCCINATE (METOPROLOL SUCCINATE) (UNKNOWN) (METOPROLOL SUCCINATE) [Concomitant]

REACTIONS (14)
  - Leukocytosis [None]
  - Myxoedema coma [None]
  - Macrocytosis [None]
  - Tachypnoea [None]
  - Bacterial test positive [None]
  - Myoclonus [None]
  - Stupor [None]
  - Hypothermia [None]
  - Hypertension [None]
  - Anaemia [None]
  - Hyponatraemia [None]
  - Respiratory acidosis [None]
  - Speech disorder [None]
  - Sinus bradycardia [None]
